FAERS Safety Report 25086937 (Version 1)
Quarter: 2025Q1

REPORT INFORMATION
  Report Type: Spontaneous
  Country: US (occurrence: US)
  Receive Date: 20250318
  Receipt Date: 20250318
  Transmission Date: 20250409
  Serious: No
  Sender: ALKEM
  Company Number: US-ALKEM LABORATORIES LIMITED-US-ALKEM-2025-00787

PATIENT
  Sex: Female
  Weight: 68.027 kg

DRUGS (2)
  1. TEMAZEPAM [Suspect]
     Active Substance: TEMAZEPAM
     Indication: Initial insomnia
     Route: 048
  2. MONTELUKAST [Concomitant]
     Active Substance: MONTELUKAST
     Indication: Pyrexia
     Route: 065

REACTIONS (1)
  - Drug ineffective [Unknown]
